FAERS Safety Report 5778665-1 (Version None)
Quarter: 2008Q2

REPORT INFORMATION
  Report Type: 
  Country: None (occurrence: None)
  Receive Date: 20080619
  Receipt Date: 20080609
  Transmission Date: 20081010
  Serious: Yes (Hospitalization, Other)
  Sender: FDA-Public Use
  Company Number: B0517253A

PATIENT
  Age: 38 Year
  Sex: Female
  Weight: 65 kg

DRUGS (5)
  1. REQUIP [Suspect]
     Route: 065
     Dates: start: 20071215, end: 20080228
  2. FORLAX [Concomitant]
     Route: 048
     Dates: end: 20080111
  3. ZANTAC [Concomitant]
     Dosage: 150MG TWICE PER DAY
     Route: 065
  4. SEROXAT [Concomitant]
     Route: 065
     Dates: end: 20080205
  5. CRANBERRY [Concomitant]
     Route: 065

REACTIONS (5)
  - HALLUCINATION [None]
  - ILLUSION [None]
  - OFF LABEL USE [None]
  - PSYCHOTIC DISORDER [None]
  - THERAPEUTIC RESPONSE UNEXPECTED [None]
